FAERS Safety Report 4936004-X (Version None)
Quarter: 2006Q1

REPORT INFORMATION
  Report Type: 
  Country: None (occurrence: None)
  Receive Date: 20060127
  Receipt Date: 20051010
  Transmission Date: 20060701
  Serious: Yes (Other)
  Sender: FDA-Public Use
  Company Number: 2005141236

PATIENT
  Age: 93 Year
  Sex: Male
  Weight: 66.2252 kg

DRUGS (3)
  1. LYRICA [Suspect]
     Indication: PAIN
     Dosage: 375 MG (DAILY)
     Dates: start: 20050101
  2. FOSAMAX [Concomitant]
  3. PERCOCET [Concomitant]

REACTIONS (2)
  - DRUG INEFFECTIVE [None]
  - PAIN [None]
